FAERS Safety Report 7135427-0 (Version None)
Quarter: 2010Q4

REPORT INFORMATION
  Report Type: 
  Country: None (occurrence: None)
  Receive Date: 20101203
  Receipt Date: 20101123
  Transmission Date: 20110411
  Serious: Yes (Other)
  Sender: FDA-Public Use
  Company Number: US-JNJCH-2010026907

PATIENT
  Age: 25 Year
  Sex: Female

DRUGS (1)
  1. LISTERINE WHITENING PLUS RESTORING FLUORIDE RINSE [Suspect]
     Indication: DENTAL CARE
     Dosage: TEXT:ONE CAPFUL ONCE DAILY IN MORNING
     Route: 048

REACTIONS (4)
  - ACCIDENTAL EXPOSURE [None]
  - NAUSEA [None]
  - SOMNOLENCE [None]
  - VOMITING [None]
